FAERS Safety Report 17826260 (Version 1)
Quarter: 2020Q2

REPORT INFORMATION
  Report Type: Report from Study
  Country: US (occurrence: US)
  Receive Date: 20200526
  Receipt Date: 20200526
  Transmission Date: 20200714
  Serious: Yes (Other)
  Sender: FDA-Public Use
  Company Number: US-SA-2020SA108700

PATIENT
  Age: 42 Year
  Sex: Male

DRUGS (4)
  1. HYDROXYCHLOROQUINE [Concomitant]
     Active Substance: HYDROXYCHLOROQUINE
     Dosage: 200 MG, BID
     Dates: start: 20200403, end: 20200412
  2. SOLU-MEDROL [Concomitant]
     Active Substance: METHYLPREDNISOLONE SODIUM SUCCINATE
     Indication: CORONAVIRUS INFECTION
     Dosage: 70 MG, Q12H
     Dates: start: 20200403
  3. SARILUMAB [Suspect]
     Active Substance: SARILUMAB
     Indication: CORONAVIRUS INFECTION
     Dosage: 1X, REGN88 OR PLACEBO, 200 MG OR 400 MG, SINGLE
     Route: 042
     Dates: start: 20200403, end: 20200403
  4. HYDROXYCHLOROQUINE [Concomitant]
     Active Substance: HYDROXYCHLOROQUINE
     Indication: CORONAVIRUS INFECTION
     Dosage: 400 MG, BID
     Dates: start: 20200402, end: 20200402

REACTIONS (2)
  - Liver function test increased [Recovered/Resolved]
  - Bacteraemia [Recovering/Resolving]

NARRATIVE: CASE EVENT DATE: 20200404
